FAERS Safety Report 11093481 (Version 1)
Quarter: 2015Q2

REPORT INFORMATION
  Report Type: Spontaneous
  Country: US (occurrence: None)
  Receive Date: 20150428
  Receipt Date: 20150428
  Transmission Date: 20150821
  Serious: Yes (Other)
  Sender: FDA-Public Use
  Company Number: PHEH2014US025511

PATIENT
  Age: 25 Year
  Sex: Male

DRUGS (1)
  1. GILENYA [Suspect]
     Active Substance: FINGOLIMOD HYDROCHLORIDE
     Indication: MULTIPLE SCLEROSIS
     Dates: start: 20140630

REACTIONS (14)
  - Paraesthesia [None]
  - Lymphocyte count decreased [None]
  - Psychomotor retardation [None]
  - Visual acuity reduced [None]
  - Multiple sclerosis relapse [None]
  - Colour blindness acquired [None]
  - Diplopia [None]
  - Vision blurred [None]
  - Central nervous system lesion [None]
  - Confusional state [None]
  - Disturbance in attention [None]
  - Asthenia [None]
  - Headache [None]
  - CSF test abnormal [None]

NARRATIVE: CASE EVENT DATE: 201406
